FAERS Safety Report 9365230 (Version 2)
Quarter: 2013Q3

REPORT INFORMATION
  Report Type: Spontaneous
  Country: IN (occurrence: IN)
  Receive Date: 20130624
  Receipt Date: 20130703
  Transmission Date: 20140515
  Serious: Yes (Death, Hospitalization)
  Sender: FDA-Public Use
  Company Number: IN-ABBOTT-13X-078-1109100-00

PATIENT
  Age: 12 Year
  Sex: Male

DRUGS (3)
  1. VALPROATE SODIUM [Suspect]
     Indication: EPILEPSY
     Dosage: 300 MILLIGRAM(S) ;DAILY
  2. LAMOTRIGINE [Interacting]
     Indication: EPILEPSY
     Dosage: 50 MILLIGRAM(S); DAILY
     Route: 048
  3. CLONAZEPAM [Concomitant]
     Indication: PRODUCT USED FOR UNKNOWN INDICATION

REACTIONS (17)
  - Toxic epidermal necrolysis [Fatal]
  - Respiratory failure [Fatal]
  - Drug interaction [Unknown]
  - Ocular hyperaemia [Unknown]
  - Dyspnoea [Unknown]
  - Pyrexia [Unknown]
  - Eyelid oedema [Unknown]
  - Blister [Unknown]
  - Delirium [Unknown]
  - Heart rate increased [Unknown]
  - Respiratory rate increased [Unknown]
  - Rash erythematous [Unknown]
  - Blister [Unknown]
  - Skin erosion [Unknown]
  - Nikolsky^s sign [Unknown]
  - Oral mucosa erosion [Unknown]
  - Genital erosion [Unknown]
